FAERS Safety Report 23611091 (Version 1)
Quarter: 2024Q1

REPORT INFORMATION
  Report Type: Report from Study
  Country: US (occurrence: US)
  Receive Date: 20240308
  Receipt Date: 20240308
  Transmission Date: 20240409
  Serious: Yes (Other)
  Sender: FDA-Public Use
  Company Number: US-ALNYLAM PHARMACEUTICALS, INC.-ALN-2024-001321

PATIENT

DRUGS (5)
  1. GIVLAARI [Suspect]
     Active Substance: GIVOSIRAN SODIUM
     Indication: Porphyria acute
     Dosage: UNK
     Route: 065
     Dates: start: 20240228, end: 20240228
  2. GIVLAARI [Suspect]
     Active Substance: GIVOSIRAN SODIUM
     Dosage: UNK
     Route: 065
     Dates: start: 20200804, end: 20200804
  3. GIVLAARI [Suspect]
     Active Substance: GIVOSIRAN SODIUM
     Dosage: UNK
     Route: 065
     Dates: start: 20240131, end: 20240131
  4. PANHEMATIN [Concomitant]
     Active Substance: HEMIN
     Indication: Product used for unknown indication
     Dosage: UNK, MONTHLY
     Route: 065
  5. DEXTROSE [Concomitant]
     Active Substance: DEXTROSE\DEXTROSE MONOHYDRATE
     Indication: Product used for unknown indication
     Dosage: UNK (AT EACH INJECTION OR INFUSION APPOINTMENT)
     Route: 065

REACTIONS (1)
  - Porphyria acute [Recovering/Resolving]

NARRATIVE: CASE EVENT DATE: 20240101
